FAERS Safety Report 14100890 (Version 1)
Quarter: 2017Q4

REPORT INFORMATION
  Report Type: Spontaneous
  Country: US (occurrence: None)
  Receive Date: 20171017
  Receipt Date: 20171017
  Transmission Date: 20180321
  Serious: Yes (Disabling)
  Sender: FDA-Public Use
  Company Number: None

PATIENT
  Age: 63 Year
  Sex: Female
  Weight: 74.84 kg

DRUGS (8)
  1. CIPROFLOXACIN. [Suspect]
     Active Substance: CIPROFLOXACIN
     Indication: URINARY TRACT INFECTION
     Dosage: DOSE - IV DRIP - 1 PILL?FREWUENCY - IV DRIP/ONE PILL?ADM ROUTE - IVDRP AND PO
     Route: 048
     Dates: start: 20170901, end: 20170904
  2. CIPROFLOXACIN. [Suspect]
     Active Substance: CIPROFLOXACIN
     Indication: APPENDICITIS
     Dosage: DOSE - IV DRIP - 1 PILL?FREWUENCY - IV DRIP/ONE PILL?ADM ROUTE - IVDRP AND PO
     Route: 048
     Dates: start: 20170901, end: 20170904
  3. VITAMIN D [Concomitant]
     Active Substance: CHOLECALCIFEROL
  4. LORATADINE. [Concomitant]
     Active Substance: LORATADINE
  5. VITAMIN B12 [Concomitant]
     Active Substance: CYANOCOBALAMIN
  6. LISINOPRIL. [Concomitant]
     Active Substance: LISINOPRIL
  7. COD LIVER OIL [Concomitant]
     Active Substance: COD LIVER OIL
  8. MEGA RED [Concomitant]

REACTIONS (1)
  - Rash [None]

NARRATIVE: CASE EVENT DATE: 20170902
